FAERS Safety Report 5801862-3 (Version None)
Quarter: 2008Q3

REPORT INFORMATION
  Report Type: 
  Country: None (occurrence: None)
  Receive Date: 20080707
  Receipt Date: 20080702
  Transmission Date: 20090109
  Serious: Yes (Hospitalization)
  Sender: FDA-Public Use
  Company Number: IN-BRISTOL-MYERS SQUIBB COMPANY-14248298

PATIENT

DRUGS (3)
  1. TAXOL [Suspect]
  2. CISPLATIN [Suspect]
  3. IFOSFAMIDE [Suspect]

REACTIONS (1)
  - TOXIC ENCEPHALOPATHY [None]
